FAERS Safety Report 4578629-X (Version None)
Quarter: 2005Q1

REPORT INFORMATION
  Report Type: 
  Country: None (occurrence: None)
  Receive Date: 20050207
  Receipt Date: 20050207
  Transmission Date: 20050727
  Serious: Yes (Life-Threatening, Hospitalization)
  Sender: FDA-Public Use
  Company Number: None

PATIENT
  Age: 15 Year
  Sex: Female
  Weight: 58.9676 kg

DRUGS (1)
  1. ZOLOFT [Suspect]
     Indication: DEPRESSION
     Dosage: 1  2XD   ORAL
     Route: 048
     Dates: start: 20040809, end: 20040826

REACTIONS (5)
  - AGITATION [None]
  - CRYING [None]
  - DYSKINESIA [None]
  - OVERDOSE [None]
  - SCREAMING [None]
